FAERS Safety Report 4337015-8 (Version None)
Quarter: 2004Q1

REPORT INFORMATION
  Report Type: 
  Country: None (occurrence: None)
  Receive Date: 20040329
  Receipt Date: 20040119
  Transmission Date: 20041129
  Serious: No
  Sender: FDA-Public Use
  Company Number: USA040156963

PATIENT
  Age: 7 Year
  Sex: Female
  Weight: 26 kg

DRUGS (4)
  1. STRATTERA [Suspect]
     Indication: ATTENTION DEFICIT/HYPERACTIVITY DISORDER
     Dosage: 18 MG/2 DAY
     Dates: start: 20030228, end: 20030501
  2. TRAZODONE HCL [Concomitant]
  3. GEODON [Concomitant]
  4. CLONIDINE [Concomitant]

REACTIONS (1)
  - MANIA [None]
